FAERS Safety Report 14829422 (Version 2)
Quarter: 2018Q2

REPORT INFORMATION
  Report Type: Spontaneous
  Country: EC (occurrence: EC)
  Receive Date: 20180430
  Receipt Date: 20180509
  Transmission Date: 20180711
  Serious: Yes (Hospitalization, Other)
  Sender: FDA-Public Use
  Company Number: EC-DEPOMED, INC.-EC-2018DEP000930

PATIENT
  Age: 68 Year
  Sex: Male

DRUGS (8)
  1. OXYGEN. [Concomitant]
     Active Substance: OXYGEN
     Indication: CHRONIC OBSTRUCTIVE PULMONARY DISEASE
     Dosage: UNK
  2. CONCOR [Concomitant]
     Active Substance: BISOPROLOL FUMARATE
     Indication: PRODUCT USED FOR UNKNOWN INDICATION
     Dosage: UNK
  3. GRANISETRON [Concomitant]
     Active Substance: GRANISETRON
     Indication: ANTIEMETIC SUPPORTIVE CARE
     Dosage: UNK
  4. LASIX [Concomitant]
     Active Substance: FUROSEMIDE
     Indication: PRODUCT USED FOR UNKNOWN INDICATION
     Dosage: UNK
  5. TRAMADOL HYDROCHLORIDE. [Concomitant]
     Active Substance: TRAMADOL HYDROCHLORIDE
     Indication: POST-TRAUMATIC PAIN
     Dosage: UNK
     Dates: start: 20180414
  6. TAPENTADOL HYDROCHLORIDE [Suspect]
     Active Substance: TAPENTADOL HYDROCHLORIDE
     Indication: POSTOPERATIVE CARE
     Dosage: 50 MG, EVERY 12 HRS
     Route: 048
     Dates: start: 20180416
  7. AMLODIPINO                         /00972401/ [Concomitant]
     Active Substance: AMLODIPINE BESYLATE
     Indication: PRODUCT USED FOR UNKNOWN INDICATION
     Dosage: UNK
  8. VIAGRA [Concomitant]
     Active Substance: SILDENAFIL CITRATE
     Indication: PRODUCT USED FOR UNKNOWN INDICATION
     Dosage: UNK

REACTIONS (8)
  - Oxygen saturation decreased [Recovered/Resolved]
  - Cyanosis [Unknown]
  - Hepatic failure [Recovered/Resolved]
  - Blood pressure decreased [Unknown]
  - Dyspnoea [Unknown]
  - Urinary retention [Recovered/Resolved]
  - Depressed level of consciousness [Unknown]
  - Poisoning [Unknown]

NARRATIVE: CASE EVENT DATE: 20180416
